FAERS Safety Report 7883780-2 (Version None)
Quarter: 2011Q4

REPORT INFORMATION
  Report Type: 
  Country: None (occurrence: None)
  Receive Date: 20111102
  Receipt Date: 20111019
  Transmission Date: 20120403
  Serious: Yes (Other)
  Sender: FDA-Public Use
  Company Number: JP-SANOFI-AVENTIS-2011SA069818

PATIENT
  Age: 45 Year
  Sex: Female

DRUGS (3)
  1. ALFACALCIDOL [Concomitant]
  2. FUROSEMIDE [Suspect]
     Route: 048
  3. SODIUM BICARBONATE [Suspect]
     Route: 065

REACTIONS (3)
  - METABOLIC ALKALOSIS [None]
  - HYPOKALAEMIA [None]
  - PSEUDO-BARTTER SYNDROME [None]
